FAERS Safety Report 7379987-3 (Version None)
Quarter: 2011Q1

REPORT INFORMATION
  Report Type: 
  Country: None (occurrence: None)
  Receive Date: 20110329
  Receipt Date: 20110328
  Transmission Date: 20110831
  Serious: Yes (Hospitalization)
  Sender: FDA-Public Use
  Company Number: PHHO2010US13831

PATIENT
  Age: 58 Year
  Sex: Male
  Weight: 124 kg

DRUGS (4)
  1. LOTREL [Suspect]
  2. NIFEDIPINE [Suspect]
  3. LOPRESSOR [Suspect]
  4. ROSIGLITAZONE MALEATE [Suspect]

REACTIONS (3)
  - STENT PLACEMENT [None]
  - CHEST PAIN [None]
  - MYOCARDIAL INFARCTION [None]
